FAERS Safety Report 23845773 (Version 1)
Quarter: 2024Q2

REPORT INFORMATION
  Report Type: Spontaneous
  Country: BR (occurrence: None)
  Receive Date: 20240512
  Receipt Date: 20240512
  Transmission Date: 20240716
  Serious: Yes (Other)
  Sender: FDA-Public Use
  Company Number: 2024A109091

PATIENT
  Sex: Male
  Weight: 76 kg

DRUGS (1)
  1. TAGRISSO [Suspect]
     Active Substance: OSIMERTINIB
     Indication: Lung neoplasm malignant
     Dosage: ONE PILL A DAY
     Route: 048
     Dates: start: 20230205

REACTIONS (3)
  - Malignant neoplasm progression [Unknown]
  - Metastases to pelvis [Unknown]
  - Drug ineffective [Unknown]
